FAERS Safety Report 13035886 (Version 1)
Quarter: 2016Q4

REPORT INFORMATION
  Report Type: Spontaneous
  Country: US (occurrence: US)
  Receive Date: 20161216
  Receipt Date: 20161216
  Transmission Date: 20170207
  Serious: Yes (Death)
  Sender: FDA-Public Use
  Company Number: US-PFIZER INC-2016337068

PATIENT
  Age: 29 Year
  Sex: Male
  Weight: 98.88 kg

DRUGS (16)
  1. OMEPRAZOLE. [Concomitant]
     Active Substance: OMEPRAZOLE
     Dosage: 20 MG, 1X/DAY (ENTERIC COATED TAKE 1 QAM)
     Route: 048
  2. ZOFRAN ODT [Concomitant]
     Active Substance: ONDANSETRON HYDROCHLORIDE
     Dosage: 8 MG, AS NEEDED (DISPERSIBLE LINGUAL TAKE 1 ODT Q8H)
     Route: 048
  3. ZOFRAN [Concomitant]
     Active Substance: ONDANSETRON HYDROCHLORIDE
     Indication: NAUSEA
     Dosage: 8 MG, AS NEEDED (TAKE 1 Q8H) (EVERY 8 HOURS)
     Route: 048
     Dates: start: 20161114
  4. SCOPOLAMINE [Concomitant]
     Active Substance: SCOPOLAMINE
     Indication: NAUSEA
     Dosage: 1 DF, EVERY 72 HOURS
     Route: 062
     Dates: start: 20161114
  5. ATORVASTATIN CALCIUM. [Concomitant]
     Active Substance: ATORVASTATIN CALCIUM
     Dosage: 20 MG, DAILY (TAKE 1)
     Route: 048
  6. LEVETIRACETAM. [Concomitant]
     Active Substance: LEVETIRACETAM
     Indication: SEIZURE
     Dosage: 1000 MG, 2X/DAY (TAKE 1, BID)
     Route: 048
     Dates: start: 20140331
  7. IBRANCE [Suspect]
     Active Substance: PALBOCICLIB
     Indication: BRAIN NEOPLASM
     Dosage: 125 MG, 1X/DAY (ONCE A DAY FOR 28 DAY SUPPLY)
     Route: 048
     Dates: start: 20161004, end: 20161114
  8. DILANTIN [Concomitant]
     Active Substance: PHENYTOIN
     Dosage: 100 MG, 2X/DAY (TAKE 1 BID)
     Route: 048
     Dates: start: 20121008
  9. TRILEPTAL [Concomitant]
     Active Substance: OXCARBAZEPINE
     Dosage: 300 MG, 2X/DAY (TAKE 1, BID)
     Route: 048
  10. LORAZEPAM. [Concomitant]
     Active Substance: LORAZEPAM
     Indication: ANXIETY
     Dosage: 1 MG, AS NEEDED (TAKE 1 Q6-8H)
     Route: 048
  11. PROMETHAZINE [Concomitant]
     Active Substance: PROMETHAZINE\PROMETHAZINE HYDROCHLORIDE
     Indication: NAUSEA
     Dosage: 25 MG, AS NEEDED (EVERY 4 HOURS)
     Route: 048
     Dates: start: 20161114
  12. ZETIA [Concomitant]
     Active Substance: EZETIMIBE
     Dosage: 10 MG, 1X/DAY (TAKE 1, QHS)
     Route: 048
  13. ATIVAN [Concomitant]
     Active Substance: LORAZEPAM
     Indication: ANXIETY
     Dosage: 1 MG, AS NEEDED (EVERY 4 TO 6 HOURS)
     Route: 048
     Dates: start: 20161114
  14. DEXAMETHASONE. [Concomitant]
     Active Substance: DEXAMETHASONE
     Indication: HEADACHE
  15. PHENYTOIN. [Concomitant]
     Active Substance: PHENYTOIN
     Indication: SEIZURE
     Dosage: 300 MG, DAILY
     Route: 048
  16. DEXAMETHASONE. [Concomitant]
     Active Substance: DEXAMETHASONE
     Indication: DIZZINESS
     Dosage: UNK
     Dates: start: 2013

REACTIONS (2)
  - Neoplasm progression [Fatal]
  - Product use issue [Unknown]

NARRATIVE: CASE EVENT DATE: 20161004
